FAERS Safety Report 8207428-2 (Version None)
Quarter: 2012Q1

REPORT INFORMATION
  Report Type: 
  Country: None (occurrence: None)
  Receive Date: 20120314
  Receipt Date: 20120306
  Transmission Date: 20120608
  Serious: Yes (Other)
  Sender: FDA-Public Use
  Company Number: JP-ASTELLAS-2012JP001653

PATIENT
  Sex: Male

DRUGS (3)
  1. VESICARE [Suspect]
     Dosage: 5 MG, UNKNOWN/D
     Route: 048
  2. TAMSULOSIN HCL [Concomitant]
     Dosage: 0.2 MG, UNKNOWN/D
     Route: 048
  3. ARICEPT [Concomitant]
     Route: 048

REACTIONS (2)
  - LOSS OF CONSCIOUSNESS [None]
  - BLOOD PRESSURE INCREASED [None]
